FAERS Safety Report 20630597 (Version 1)
Quarter: 2022Q1

REPORT INFORMATION
  Report Type: Spontaneous
  Country: CA (occurrence: CA)
  Receive Date: 20220324
  Receipt Date: 20220324
  Transmission Date: 20220423
  Serious: Yes (Hospitalization, Other)
  Sender: FDA-Public Use
  Company Number: CA-AUROBINDO-AUR-APL-2022-008332

PATIENT
  Age: 72 Year
  Sex: Male
  Weight: 112 kg

DRUGS (2)
  1. LISINOPRIL [Suspect]
     Active Substance: LISINOPRIL
     Indication: Product used for unknown indication
     Dosage: UNK
     Route: 065
     Dates: start: 2020, end: 20210531
  2. SEMAGLUTIDE [Suspect]
     Active Substance: SEMAGLUTIDE
     Indication: Obesity
     Dosage: UNK
     Route: 065
     Dates: start: 20190418

REACTIONS (8)
  - Hypersensitivity [Recovered/Resolved]
  - Pruritus [Unknown]
  - Paraesthesia [Unknown]
  - Urticaria [Unknown]
  - Dizziness [Unknown]
  - Syncope [Unknown]
  - Angioedema [Unknown]
  - Presyncope [Unknown]

NARRATIVE: CASE EVENT DATE: 20210529
